FAERS Safety Report 7811153-7 (Version None)
Quarter: 2011Q4

REPORT INFORMATION
  Report Type: 
  Country: None (occurrence: None)
  Receive Date: 20111013
  Receipt Date: 20111005
  Transmission Date: 20120403
  Serious: Yes (Hospitalization)
  Sender: FDA-Public Use
  Company Number: US-UCBSA-041495

PATIENT
  Age: 30 Year
  Sex: Female
  Weight: 69.4 kg

DRUGS (9)
  1. ZOLPIDEM [Concomitant]
     Indication: INSOMNIA
     Dosage: AT NIGHT
     Route: 048
     Dates: start: 20110101
  2. PROMETHEZINE [Concomitant]
     Indication: NAUSEA
     Dosage: 25 MG Q 4 HOURS
     Route: 048
     Dates: start: 20010101
  3. MERCAPTOPURINE [Concomitant]
     Indication: CROHN'S DISEASE
     Route: 048
     Dates: start: 20110601
  4. CIMZIA [Suspect]
     Indication: CROHN'S DISEASE
     Route: 058
     Dates: start: 20110805
  5. BENADRYL [Concomitant]
     Route: 048
  6. HYDROCODONE BITARTRATE [Concomitant]
     Indication: PAIN
     Dosage: 10/325 MG TWO PRN
     Route: 048
     Dates: start: 20110601
  7. DICYCLOMINE [Concomitant]
     Indication: GASTROINTESTINAL PAIN
     Dosage: 20 MG Q 6 HOURS
     Route: 048
     Dates: start: 20070101
  8. IBUPROFEN (ADVIL) [Concomitant]
     Dosage: VARIABLE
     Route: 048
  9. ALPRAZOLAM [Concomitant]
     Indication: CROHN'S DISEASE
     Route: 048
     Dates: start: 20010101

REACTIONS (1)
  - PERINEAL ABSCESS [None]
